FAERS Safety Report 9387872 (Version 4)
Quarter: 2014Q3

REPORT INFORMATION
  Report Type: Spontaneous
  Country: US (occurrence: None)
  Receive Date: 20130701
  Receipt Date: 20140808
  Transmission Date: 20150326
  Serious: Yes (Hospitalization)
  Sender: FDA-Public Use
  Company Number: VAL_02603_2013

PATIENT
  Age: 79 Year
  Sex: Female
  Weight: 57.15 kg

DRUGS (4)
  1. SERTRALINE [Concomitant]
     Active Substance: SERTRALINE HYDROCHLORIDE
  2. METOPROLOL [Suspect]
     Active Substance: METOPROLOL
     Indication: HYPERTENSION
     Route: 048
     Dates: start: 2011, end: 20130612
  3. LOW DOSE AH5N1C VS HIGH DOSE AH5N1C IN ELDERLY SUBJECTS (CODE NOT BROKEN) [Suspect]
     Active Substance: INFLUENZA VIRUS VACCINE
     Indication: IMMUNISATION
     Route: 030
     Dates: start: 20130214, end: 2013
  4. HYDROCHLOROTHIAZIDE. [Concomitant]
     Active Substance: HYDROCHLOROTHIAZIDE

REACTIONS (5)
  - Dizziness [None]
  - Back injury [None]
  - Bradycardia [None]
  - Fall [None]
  - Back pain [None]

NARRATIVE: CASE EVENT DATE: 20130612
